FAERS Safety Report 23377851 (Version 1)
Quarter: 2024Q1

REPORT INFORMATION
  Report Type: Spontaneous
  Country: US (occurrence: US)
  Receive Date: 20240108
  Receipt Date: 20240108
  Transmission Date: 20240410
  Serious: No
  Sender: FDA-Public Use
  Company Number: US-BIOGENIDEC-2015BI103655

PATIENT
  Age: 50 Year
  Sex: Female

DRUGS (3)
  1. TECFIDERA [Suspect]
     Active Substance: DIMETHYL FUMARATE
     Indication: Multiple sclerosis
     Route: 050
     Dates: start: 20140123, end: 20140723
  2. VITAMIN D [Concomitant]
     Active Substance: VITAMIN D NOS
     Route: 050
  3. IRON [Concomitant]
     Active Substance: IRON
     Route: 050

REACTIONS (3)
  - Gastrointestinal disorder [Unknown]
  - Lymphocyte count decreased [Recovered/Resolved]
  - Flushing [Recovered/Resolved]

NARRATIVE: CASE EVENT DATE: 20140211
